FAERS Safety Report 8530996-8 (Version None)
Quarter: 2012Q3

REPORT INFORMATION
  Report Type: 
  Country: None (occurrence: None)
  Receive Date: 20120723
  Receipt Date: 20120719
  Transmission Date: 20120928
  Serious: Yes (Hospitalization)
  Sender: FDA-Public Use
  Company Number: AT-ROCHE-1090366

PATIENT
  Sex: Female
  Weight: 93 kg

DRUGS (4)
  1. DOXORUBICIN HCL [Concomitant]
  2. DOCETAXEL (NON-ROCHE/NON-COMPARATOR) [Concomitant]
  3. AVASTIN [Suspect]
     Indication: BREAST CANCER METASTATIC
     Route: 042
     Dates: start: 20110512, end: 20120627
  4. XELODA [Suspect]
     Indication: BREAST CANCER METASTATIC
     Route: 048
     Dates: start: 20110720, end: 20120425

REACTIONS (1)
  - BILIARY COLIC [None]
